FAERS Safety Report 24969125 (Version 1)
Quarter: 2025Q1

REPORT INFORMATION
  Report Type: Spontaneous
  Country: US (occurrence: US)
  Receive Date: 20250214
  Receipt Date: 20250214
  Transmission Date: 20250408
  Serious: No
  Sender: AMNEAL
  Company Number: US-AMNEAL PHARMACEUTICALS-2024-AMRX-00508

PATIENT
  Age: 76 Year
  Sex: Male

DRUGS (4)
  1. RYTARY [Suspect]
     Active Substance: CARBIDOPA\LEVODOPA
     Indication: Product used for unknown indication
     Dosage: 3 CAPSULES, 4X/DAY
     Route: 048
     Dates: start: 20240201
  2. RYTARY [Suspect]
     Active Substance: CARBIDOPA\LEVODOPA
     Dosage: (61.25-245 MG) TAKE 2 CAPSULES BY MOUTH FOUR TIMES DAILY
     Route: 048
  3. RYTARY [Suspect]
     Active Substance: CARBIDOPA\LEVODOPA
     Dosage: (36.25- 145) TAKE 3 CAPSULES BY MOUTH FOUR TIMES DAILY
     Route: 048
     Dates: start: 20240117
  4. RYTARY [Suspect]
     Active Substance: CARBIDOPA\LEVODOPA
     Dosage: (61.25-245 MG) TAKE TWO CAPSULES BY MOUTH FOUR TIMES A DAY
     Route: 048
     Dates: start: 20240213

REACTIONS (1)
  - Condition aggravated [Unknown]

NARRATIVE: CASE EVENT DATE: 20240201
